FAERS Safety Report 13641817 (Version 1)
Quarter: 2017Q2

REPORT INFORMATION
  Report Type: Spontaneous
  Country: US (occurrence: US)
  Receive Date: 20170612
  Receipt Date: 20170612
  Transmission Date: 20170830
  Serious: No
  Sender: FDA-Public Use
  Company Number: US-PFIZER INC-2017249509

PATIENT
  Age: 74 Year
  Sex: Female
  Weight: 144.2 kg

DRUGS (2)
  1. XELJANZ [Suspect]
     Active Substance: TOFACITINIB CITRATE
     Indication: INFLAMMATION
  2. XELJANZ [Suspect]
     Active Substance: TOFACITINIB CITRATE
     Indication: RHEUMATOID ARTHRITIS
     Dosage: 5 MG, 1X/DAY,(ONE TABLET BY MOUTH ONCE DAILY)
     Route: 048
     Dates: start: 201703, end: 20170424

REACTIONS (2)
  - Oral disorder [Recovered/Resolved]
  - Bronchitis [Recovering/Resolving]
